FAERS Safety Report 15126404 (Version 4)
Quarter: 2019Q2

REPORT INFORMATION
  Report Type: Report from Study
  Country: BE (occurrence: BE)
  Receive Date: 20180710
  Receipt Date: 20190422
  Transmission Date: 20190711
  Serious: Yes (Hospitalization)
  Sender: FDA-Public Use
  Company Number: BE-SA-2018SA129775

PATIENT
  Age: 60 Year
  Sex: Female
  Weight: 60 kg

DRUGS (15)
  1. RANITIDINE. [Concomitant]
     Active Substance: RANITIDINE
     Dosage: 300 MG,  UNK
     Route: 048
     Dates: start: 20170326, end: 20170402
  2. ACICLOVIR [Concomitant]
     Active Substance: ACYCLOVIR
     Indication: PROPHYLAXIS
     Dosage: 400 MG,UNK
     Route: 048
     Dates: start: 20170327
  3. RIVOTRIL [Concomitant]
     Active Substance: CLONAZEPAM
     Indication: RESTLESS LEGS SYNDROME
     Dosage: 4UNK,UNK
     Route: 048
     Dates: start: 2017
  4. METHYLPREDNISOLONE. [Concomitant]
     Active Substance: METHYLPREDNISOLONE
     Dosage: 1000 MG, UNK
     Route: 042
     Dates: start: 20170327, end: 20170329
  5. CETIRIZINE [Concomitant]
     Active Substance: CETIRIZINE HYDROCHLORIDE
     Indication: PROPHYLAXIS
     Dosage: 10 MG,UNK
     Route: 048
     Dates: start: 20180327, end: 20180403
  6. CETIRIZINE [Concomitant]
     Active Substance: CETIRIZINE HYDROCHLORIDE
     Dosage: 10 MG, UNK
     Route: 048
     Dates: start: 20170326, end: 20170402
  7. METHYLPREDNISOLONE. [Concomitant]
     Active Substance: METHYLPREDNISOLONE
     Dosage: 250 MG, UNK
     Route: 042
     Dates: start: 20170330, end: 20170331
  8. BACTRIM [Concomitant]
     Active Substance: SULFAMETHOXAZOLE\TRIMETHOPRIM
     Indication: PROPHYLAXIS
     Dosage: 800 MG,UNK
     Route: 048
     Dates: start: 20180321
  9. ACICLOVIR [Concomitant]
     Active Substance: ACYCLOVIR
     Dosage: 400 MG,UNK
     Route: 048
     Dates: start: 20180328, end: 20180426
  10. DAFALGAN [Concomitant]
     Active Substance: ACETAMINOPHEN
     Indication: PROPHYLAXIS
     Dosage: 1 G,UNK
     Route: 048
     Dates: start: 20170327, end: 20170331
  11. METHYLPREDNISOLONE. [Concomitant]
     Active Substance: METHYLPREDNISOLONE
     Indication: PROPHYLAXIS
     Dosage: 1000 MG,UNK
     Route: 041
     Dates: start: 20180328, end: 20180330
  12. RANITIDINE. [Concomitant]
     Active Substance: RANITIDINE
     Indication: PROPHYLAXIS
     Dosage: 400 MG,UNK
     Route: 048
     Dates: start: 20180328, end: 20180403
  13. ALEMTUZUMAB [Suspect]
     Active Substance: ALEMTUZUMAB
     Indication: MULTIPLE SCLEROSIS RELAPSE
     Dosage: 12 MG,QD
     Route: 041
     Dates: start: 20170327, end: 20170331
  14. ALEMTUZUMAB [Suspect]
     Active Substance: ALEMTUZUMAB
     Dosage: 12 MG,QD
     Route: 041
     Dates: start: 20180328, end: 20180330
  15. DAFALGAN [Concomitant]
     Active Substance: ACETAMINOPHEN
     Dosage: 1 G,UNK
     Route: 048
     Dates: start: 20180328, end: 20180330

REACTIONS (4)
  - Haemodilution [Recovered/Resolved]
  - Ophthalmic herpes zoster [Recovered/Resolved]
  - Leukocytosis [Recovered/Resolved]
  - Multiple sclerosis relapse [Recovered/Resolved]

NARRATIVE: CASE EVENT DATE: 20180226
